FAERS Safety Report 7336329-7 (Version None)
Quarter: 2011Q1

REPORT INFORMATION
  Report Type: 
  Country: None (occurrence: None)
  Receive Date: 20110307
  Receipt Date: 20110301
  Transmission Date: 20110831
  Serious: Yes (Death, Other)
  Sender: FDA-Public Use
  Company Number: JP-PFIZER INC-2010170986

PATIENT
  Age: 70 Year
  Sex: Female

DRUGS (1)
  1. SUTENT [Suspect]
     Indication: METASTATIC RENAL CELL CARCINOMA
     Dosage: 50 MG, 1X/DAY
     Route: 048
     Dates: start: 20101126, end: 20101208

REACTIONS (5)
  - METASTATIC RENAL CELL CARCINOMA [None]
  - HYPOTHYROIDISM [None]
  - RENAL TUBULAR DISORDER [None]
  - PLATELET COUNT DECREASED [None]
  - DISEASE PROGRESSION [None]
